FAERS Safety Report 24778170 (Version 2)
Quarter: 2025Q1

REPORT INFORMATION
  Report Type: Report from Study
  Country: US (occurrence: US)
  Receive Date: 20241226
  Receipt Date: 20250226
  Transmission Date: 20250409
  Serious: Yes (Other)
  Sender: NOVARTIS
  Company Number: US-002147023-NVSC2024US212803

PATIENT
  Sex: Female

DRUGS (1)
  1. KESIMPTA [Suspect]
     Active Substance: OFATUMUMAB
     Indication: Relapsing multiple sclerosis
     Dosage: UNK, QW
     Route: 058

REACTIONS (11)
  - Muscle rupture [Unknown]
  - Chills [Recovering/Resolving]
  - Pyrexia [Recovering/Resolving]
  - Influenza like illness [Unknown]
  - Pain in extremity [Unknown]
  - Back pain [Unknown]
  - Feeling cold [Unknown]
  - Nausea [Unknown]
  - Tremor [Unknown]
  - Injection site bruising [Unknown]
  - Stress [Recovering/Resolving]
